FAERS Safety Report 20775268 (Version 2)
Quarter: 2022Q2

REPORT INFORMATION
  Report Type: Spontaneous
  Country: JP (occurrence: JP)
  Receive Date: 20220502
  Receipt Date: 20220530
  Transmission Date: 20220721
  Serious: Yes (Hospitalization)
  Sender: FDA-Public Use
  Company Number: JP-ORGANON-O2205JPN000053

PATIENT
  Age: 88 Year
  Sex: Male
  Weight: 44.3 kg

DRUGS (5)
  1. MONTELUKAST SODIUM [Suspect]
     Active Substance: MONTELUKAST SODIUM
     Indication: Upper respiratory tract inflammation
     Dosage: 10 MG, QD
     Route: 048
     Dates: start: 20220114, end: 20220118
  2. LASCUFLOXACIN HYDROCHLORIDE [Suspect]
     Active Substance: LASCUFLOXACIN HYDROCHLORIDE
     Indication: Upper respiratory tract inflammation
     Dosage: 75 MG, QD
     Route: 048
     Dates: start: 20220114, end: 20220119
  3. HERBALS [Suspect]
     Active Substance: HERBALS
     Indication: Upper respiratory tract inflammation
     Dosage: 2.5 G, TID
     Route: 048
     Dates: start: 20220114, end: 20220118
  4. CALONAL [Suspect]
     Active Substance: ACETAMINOPHEN
     Indication: Upper respiratory tract inflammation
     Dosage: 400 MG, QD
     Route: 048
     Dates: start: 20220114, end: 20220118
  5. NIZATIDINE [Suspect]
     Active Substance: NIZATIDINE
     Indication: Upper respiratory tract inflammation
     Dosage: 150 MG, QD
     Route: 048
     Dates: start: 20220114, end: 20220118

REACTIONS (1)
  - Tubulointerstitial nephritis [Recovering/Resolving]

NARRATIVE: CASE EVENT DATE: 20220217
